FAERS Safety Report 6554678-7 (Version None)
Quarter: 2010Q1

REPORT INFORMATION
  Report Type: 
  Country: None (occurrence: None)
  Receive Date: 20100127
  Receipt Date: 20100125
  Transmission Date: 20100710
  Serious: No
  Sender: FDA-Public Use
  Company Number: US-ROXANE LABORATORIES, INC.-2010-RO-00097RO

PATIENT
  Age: 93 Year
  Sex: Male

DRUGS (1)
  1. FLUTICASONE [Suspect]
     Route: 055

REACTIONS (1)
  - DRUG INEFFECTIVE [None]
